FAERS Safety Report 10234861 (Version 2)
Quarter: 2014Q2

REPORT INFORMATION
  Report Type: Spontaneous
  Country: NL (occurrence: NL)
  Receive Date: 20140613
  Receipt Date: 20140613
  Transmission Date: 20141212
  Serious: Yes (Other)
  Sender: FDA-Public Use
  Company Number: NL-009507513-1403NLD011918

PATIENT
  Sex: Female

DRUGS (1)
  1. NEXPLANON [Suspect]
     Indication: CONTRACEPTION
     Dosage: UNK;SECONDARY IMPLANT INSERTED IN THE LEFT ARM
     Route: 058
     Dates: start: 20130530, end: 20140520

REACTIONS (2)
  - Surgery [Unknown]
  - Device breakage [Recovered/Resolved]
